FAERS Safety Report 8289557-0 (Version None)
Quarter: 2012Q2

REPORT INFORMATION
  Report Type: 
  Country: None (occurrence: None)
  Receive Date: 20120417
  Receipt Date: 20120412
  Transmission Date: 20120825
  Serious: Yes (Other)
  Sender: FDA-Public Use
  Company Number: BR-SANOFI-AVENTIS-2012SA025929

PATIENT
  Age: 30 Year
  Sex: Female
  Weight: 68 kg

DRUGS (1)
  1. ALLEGRA-D 12 HOUR [Suspect]
     Indication: ALLERGY TO STING
     Route: 048
     Dates: start: 20120410, end: 20120411

REACTIONS (4)
  - DYSENTERY [None]
  - ABDOMINAL PAIN [None]
  - HYPERHIDROSIS [None]
  - EATING DISORDER SYMPTOM [None]
